FAERS Safety Report 7268751-1 (Version None)
Quarter: 2011Q1

REPORT INFORMATION
  Report Type: 
  Country: None (occurrence: None)
  Receive Date: 20110201
  Receipt Date: 20110119
  Transmission Date: 20110831
  Serious: Yes (Other)
  Sender: FDA-Public Use
  Company Number: US-CELGENEUS-163-21880-11012374

PATIENT
  Sex: Female
  Weight: 123.49 kg

DRUGS (9)
  1. REVLIMID [Suspect]
     Indication: MULTIPLE MYELOMA
     Route: 048
     Dates: start: 20101017
  2. ACYCLOVIR [Concomitant]
     Route: 065
  3. AMIODARONE [Concomitant]
     Route: 065
  4. ULTRAM [Concomitant]
     Route: 065
  5. NEXIUM [Concomitant]
     Route: 065
  6. RENVELA [Concomitant]
     Route: 065
  7. TOPROL-XL [Concomitant]
     Route: 065
  8. ALLOPURINOL [Concomitant]
     Route: 065
  9. HYDROCODONE [Concomitant]
     Dosage: 10-325
     Route: 065

REACTIONS (9)
  - HYPERKALAEMIA [None]
  - PRURITUS [None]
  - PAIN IN EXTREMITY [None]
  - NEUROPATHY PERIPHERAL [None]
  - DIALYSIS [None]
  - DRUG INEFFECTIVE [None]
  - OEDEMA PERIPHERAL [None]
  - HAEMOGLOBIN DECREASED [None]
  - PRURITUS GENERALISED [None]
